FAERS Safety Report 6078053-7 (Version None)
Quarter: 2009Q1

REPORT INFORMATION
  Report Type: 
  Country: None (occurrence: None)
  Receive Date: 20090213
  Receipt Date: 20090206
  Transmission Date: 20090719
  Serious: Yes (Other)
  Sender: FDA-Public Use
  Company Number: US-PFIZER INC-2009167102

PATIENT
  Sex: Male
  Weight: 103.41 kg

DRUGS (6)
  1. CELEBREX [Suspect]
     Indication: PAIN
     Dates: start: 20090101
  2. CELEBREX [Suspect]
  3. SYNTHROID [Concomitant]
     Dosage: UNK
     Route: 048
  4. ACETYLSALICYLIC ACID [Concomitant]
     Dosage: UNK
     Route: 048
  5. DIGOXIN [Concomitant]
     Dosage: UNK
     Route: 048
  6. ALL OTHER THERAPEUTIC PRODUCTS [Concomitant]
     Dosage: UNK
     Route: 048

REACTIONS (2)
  - ANGER [None]
  - TINNITUS [None]
